FAERS Safety Report 15741496 (Version 1)
Quarter: 2018Q4

REPORT INFORMATION
  Report Type: Spontaneous
  Country: US (occurrence: US)
  Receive Date: 20181219
  Receipt Date: 20181219
  Transmission Date: 20190205
  Serious: Yes (Other)
  Sender: FDA-Public Use
  Company Number: US-SA-2018SA343505

PATIENT
  Age: 50 Year
  Sex: Female
  Weight: 91.17 kg

DRUGS (7)
  1. DECADRON [DEXAMETHASONE ACETATE] [Concomitant]
     Dosage: 20 MG
     Route: 042
  2. NEOSAR [Concomitant]
     Active Substance: CYCLOPHOSPHAMIDE
  3. BENADRYL [Concomitant]
     Active Substance: DIPHENHYDRAMINE HYDROCHLORIDE
     Dosage: 50 MG
     Route: 042
  4. TAXOTERE [Suspect]
     Active Substance: DOCETAXEL
     Dosage: UNK UNK, QW
     Route: 042
     Dates: start: 20100309, end: 20100309
  5. TAXOL [Concomitant]
     Active Substance: PACLITAXEL
     Dosage: 168 MG
     Route: 042
  6. TAXOTERE [Suspect]
     Active Substance: DOCETAXEL
     Indication: BREAST CANCER FEMALE
     Dosage: UNK UNK, QW
     Route: 042
     Dates: start: 20100212, end: 20100212
  7. PEPCID [FAMOTIDINE] [Concomitant]
     Dosage: 20 MG
     Route: 042

REACTIONS (1)
  - Alopecia [Not Recovered/Not Resolved]

NARRATIVE: CASE EVENT DATE: 201012
